FAERS Safety Report 12810111 (Version 1)
Quarter: 2016Q4

REPORT INFORMATION
  Report Type: Spontaneous
  Country: US (occurrence: US)
  Receive Date: 20161005
  Receipt Date: 20161005
  Transmission Date: 20170207
  Serious: Yes (Other)
  Sender: FDA-Public Use
  Company Number: None

PATIENT
  Sex: Female
  Weight: 64.86 kg

DRUGS (2)
  1. H.P. ACTHAR [Suspect]
     Active Substance: CORTICOTROPIN
     Indication: RHEUMATOID ARTHRITIS
     Route: 058
     Dates: start: 201609
  2. H.P. ACTHAR [Suspect]
     Active Substance: CORTICOTROPIN
     Indication: OSTEOPOROSIS
     Route: 058
     Dates: start: 201609

REACTIONS (3)
  - Heart rate increased [None]
  - Tongue coated [None]
  - Fluid retention [None]
